FAERS Safety Report 10263820 (Version 4)
Quarter: 2014Q3

REPORT INFORMATION
  Report Type: Spontaneous
  Country: IT (occurrence: IT)
  Receive Date: 20140627
  Receipt Date: 20140830
  Transmission Date: 20150326
  Serious: Yes (Hospitalization)
  Sender: FDA-Public Use
  Company Number: IT-ACCORD-024411

PATIENT
  Age: 63 Year
  Sex: Male

DRUGS (11)
  1. TOTALIP [Concomitant]
     Active Substance: ATORVASTATIN
     Route: 048
  2. CORLENTOR [Interacting]
     Active Substance: IVABRADINE HYDROCHLORIDE
     Indication: CARDIAC FAILURE
     Route: 048
     Dates: start: 20140101, end: 20140510
  3. CARDIOASPIRINE [Concomitant]
     Active Substance: ASPIRIN
     Route: 048
  4. FUROSEMIDE. [Suspect]
     Active Substance: FUROSEMIDE
     Indication: HYPERTENSION
     Route: 048
     Dates: start: 20140101, end: 20140510
  5. VANTAVO [Concomitant]
     Active Substance: ALENDRONATE SODIUM\CHOLECALCIFEROL
  6. LUVION [Interacting]
     Active Substance: CANRENONE
     Indication: HYPERTENSION
     Route: 048
     Dates: start: 20140101, end: 20140510
  7. LANSOX [Concomitant]
     Active Substance: LANSOPRAZOLE
     Route: 048
  8. ESKIM [Concomitant]
     Active Substance: OMEGA-3 FATTY ACIDS
     Route: 048
  9. RAMIPRIL. [Interacting]
     Active Substance: RAMIPRIL
     Indication: HYPERTENSION
     Route: 048
     Dates: start: 20140101, end: 20140510
  10. BISOPROLOL [Interacting]
     Active Substance: BISOPROLOL
     Indication: HYPERTENSION
     Route: 048
     Dates: start: 20140101, end: 20140510
  11. CLOZAPINE. [Concomitant]
     Active Substance: CLOZAPINE
     Route: 048

REACTIONS (9)
  - Bradycardia [Unknown]
  - Dizziness [Unknown]
  - Disorientation [Unknown]
  - Cerebrovascular accident [Unknown]
  - Insomnia [Unknown]
  - Vertigo [Unknown]
  - Hypotension [Unknown]
  - Drug interaction [Unknown]
  - Time perception altered [Unknown]

NARRATIVE: CASE EVENT DATE: 20140510
